FAERS Safety Report 20257451 (Version 1)
Quarter: 2021Q4

REPORT INFORMATION
  Report Type: Spontaneous
  Country: US (occurrence: US)
  Receive Date: 20211230
  Receipt Date: 20211230
  Transmission Date: 20220304
  Serious: Yes (Other)
  Sender: FDA-Public Use
  Company Number: US-GLAXOSMITHKLINE-US2021GSK265617

PATIENT
  Sex: Female

DRUGS (4)
  1. ZANTAC [Suspect]
     Active Substance: RANITIDINE HYDROCHLORIDE
     Dosage: UNK UNK, U
     Route: 065
     Dates: start: 200401, end: 201101
  2. ZANTAC [Suspect]
     Active Substance: RANITIDINE HYDROCHLORIDE
     Dosage: UNK UNK, U
     Route: 065
     Dates: start: 200401, end: 201101
  3. RANITIDINE [Suspect]
     Active Substance: RANITIDINE
     Dosage: UNK, U
     Route: 065
     Dates: start: 200401, end: 201101
  4. RANITIDINE [Suspect]
     Active Substance: RANITIDINE
     Dosage: UNK, U
     Route: 065
     Dates: start: 200401, end: 201101

REACTIONS (1)
  - Pancreatic carcinoma [Unknown]
